FAERS Safety Report 9387030 (Version 1)
Quarter: 2013Q3

REPORT INFORMATION
  Report Type: Spontaneous
  Country: US (occurrence: US)
  Receive Date: 20130708
  Receipt Date: 20130708
  Transmission Date: 20140515
  Serious: Yes (Death, Hospitalization)
  Sender: FDA-Public Use
  Company Number: US-SUN PHARMACEUTICAL INDUSTRIES LTD-2013SUN00886

PATIENT
  Sex: 0

DRUGS (5)
  1. ALPRAZOLAM [Suspect]
     Indication: PRODUCT USED FOR UNKNOWN INDICATION
     Route: 065
  2. DIAMORPHINE [Suspect]
     Indication: PRODUCT USED FOR UNKNOWN INDICATION
     Route: 065
  3. VALPROIC ACID [Concomitant]
     Dosage: 500 MG, BID
  4. VALPROIC ACID [Concomitant]
     Dosage: 1500 MG/DAY, UNK
  5. ESCITALOPRAM [Concomitant]
     Dosage: 10 MG, OD

REACTIONS (5)
  - Drug dependence [Fatal]
  - Overdose [Fatal]
  - Brain injury [Unknown]
  - Chorea [Recovering/Resolving]
  - Dystonia [Recovering/Resolving]
